FAERS Safety Report 14251271 (Version 2)
Quarter: 2018Q1

REPORT INFORMATION
  Report Type: Not Available
  Country: US (occurrence: US)
  Receive Date: 20171205
  Receipt Date: 20180205
  Transmission Date: 20180508
  Serious: Yes (Death)
  Sender: FDA-Public Use
  Company Number: US-ANIPHARMA-2017-US-014450

PATIENT
  Age: 17 Year
  Sex: Male

DRUGS (2)
  1. ZOLOFT [Suspect]
     Active Substance: SERTRALINE HYDROCHLORIDE
  2. FLUVOXAMINE (NON-SPECIFIC) [Suspect]
     Active Substance: FLUVOXAMINE

REACTIONS (5)
  - Homicidal ideation [Unknown]
  - Death [Fatal]
  - Homicide [Unknown]
  - Gun shot wound [Fatal]
  - Completed suicide [Fatal]

NARRATIVE: CASE EVENT DATE: 19990420
